FAERS Safety Report 7271319-4 (Version None)
Quarter: 2011Q1

REPORT INFORMATION
  Report Type: 
  Country: None (occurrence: None)
  Receive Date: 20110203
  Receipt Date: 20110125
  Transmission Date: 20110831
  Serious: No
  Sender: FDA-Public Use
  Company Number: US-BIOGENIDEC-2010BI042864

PATIENT
  Age: 33 Year
  Sex: Female

DRUGS (2)
  1. TYSABRI [Suspect]
     Indication: MULTIPLE SCLEROSIS
     Route: 042
     Dates: start: 20100802
  2. NEURONTIN [Concomitant]

REACTIONS (8)
  - FATIGUE [None]
  - ASTHENIA [None]
  - HEADACHE [None]
  - PHARYNGITIS STREPTOCOCCAL [None]
  - INFUSION SITE REACTION [None]
  - PAIN [None]
  - HYPOAESTHESIA [None]
  - FORMICATION [None]
